FAERS Safety Report 10309841 (Version 2)
Quarter: 2014Q3

REPORT INFORMATION
  Report Type: Spontaneous
  Country: RU (occurrence: RU)
  Receive Date: 20140717
  Receipt Date: 20140813
  Transmission Date: 20150326
  Serious: Yes (Other)
  Sender: FDA-Public Use
  Company Number: RU-PFIZER INC-2014194724

PATIENT
  Age: 18 Year
  Sex: Male

DRUGS (1)
  1. VIAGRA [Suspect]
     Active Substance: SILDENAFIL CITRATE
     Indication: ERECTILE DYSFUNCTION
     Dosage: 1 TABLET, EVERYDAY
     Route: 048
     Dates: start: 201407, end: 201407

REACTIONS (2)
  - Intentional product misuse [Recovered/Resolved]
  - Penile vein thrombosis [Recovering/Resolving]

NARRATIVE: CASE EVENT DATE: 201407
